FAERS Safety Report 12520251 (Version 2)
Quarter: 2016Q3

REPORT INFORMATION
  Report Type: Spontaneous
  Country: HK (occurrence: HK)
  Receive Date: 20160701
  Receipt Date: 20160713
  Transmission Date: 20161109
  Serious: Yes (Other)
  Sender: FDA-Public Use
  Company Number: HK-SUN PHARMACEUTICAL INDUSTRIES LTD-2016RR-119429

PATIENT
  Age: 34 Year
  Sex: Male

DRUGS (1)
  1. QUINIDINE [Suspect]
     Active Substance: QUINIDINE
     Indication: PRODUCT USED FOR UNKNOWN INDICATION
     Route: 065

REACTIONS (2)
  - Cardiogenic shock [Recovered/Resolved]
  - Ventricular arrhythmia [Recovered/Resolved]
